FAERS Safety Report 8187050-7 (Version None)
Quarter: 2012Q1

REPORT INFORMATION
  Report Type: 
  Country: None (occurrence: None)
  Receive Date: 20120213
  Receipt Date: 20120112
  Transmission Date: 20120608
  Serious: Yes (Other)
  Sender: FDA-Public Use
  Company Number: 1000027132

PATIENT
  Age: 65 Year
  Sex: Female

DRUGS (8)
  1. VENLAFAXINE HCL [Concomitant]
  2. SAVELLA [Suspect]
     Indication: FIBROMYALGIA
     Dosage: 25 MG IN AM, 50 MG IN EVENING, ORAL
     Route: 048
     Dates: start: 20110101, end: 20120107
  3. BENAZEPRIL HCTZ (BENAZEPRIL, HYDROCHLOROTHIAZIDE) [Concomitant]
  4. SAVELLA [Suspect]
     Indication: FIBROMYALGIA
     Dosage: SEE IMAGE
     Route: 048
     Dates: start: 20111101, end: 20110101
  5. SAVELLA [Suspect]
     Indication: FIBROMYALGIA
     Dosage: SEE IMAGE
     Route: 048
     Dates: start: 20110101, end: 20110101
  6. SAVELLA [Suspect]
     Indication: FIBROMYALGIA
     Dosage: SEE IMAGE
     Route: 048
     Dates: start: 20111101, end: 20111101
  7. NABUMETONE (NABUMETONE) (NABUMETONE) [Concomitant]
  8. PRAVASTATIN [Concomitant]

REACTIONS (1)
  - STEVENS-JOHNSON SYNDROME [None]
